FAERS Safety Report 8784710 (Version 1)
Quarter: 2012Q4

REPORT INFORMATION
  Report Type: Spontaneous
  Country: US (occurrence: None)
  Receive Date: 20120831
  Receipt Date: 20120831
  Transmission Date: 20130627
  Serious: Yes (Hospitalization)
  Sender: FDA-Public Use
  Company Number: 2012CT000006

PATIENT
  Age: 52 Year
  Sex: Female
  Weight: 127.01 kg

DRUGS (7)
  1. KORLYM [Suspect]
     Indication: CUSHING^S DISEASE
     Route: 048
     Dates: start: 201205, end: 201207
  2. TEV-TROPIN [Concomitant]
  3. PRILOSEC [Concomitant]
  4. METOPROLOL [Concomitant]
  5. CIPRO [Concomitant]
  6. ESTROGEN [Concomitant]
  7. METRONIDAZOLE [Concomitant]

REACTIONS (17)
  - Diverticulitis [None]
  - Oedema peripheral [None]
  - Joint swelling [None]
  - Oedema peripheral [None]
  - Oedema peripheral [None]
  - Palatal oedema [None]
  - Blood pressure increased [None]
  - Eye swelling [None]
  - Decreased appetite [None]
  - Cough [None]
  - Chest pain [None]
  - Nausea [None]
  - Petechiae [None]
  - Throat tightness [None]
  - Dysphagia [None]
  - Palatal oedema [None]
  - Oedema peripheral [None]
